FAERS Safety Report 8500895-6 (Version None)
Quarter: 2012Q2

REPORT INFORMATION
  Report Type: 
  Country: None (occurrence: None)
  Receive Date: 20120405
  Receipt Date: 20100216
  Transmission Date: 20120825
  Serious: Yes (Other)
  Sender: FDA-Public Use
  Company Number: PHEH2008US10616

PATIENT
  Sex: Female

DRUGS (1)
  1. RECLAST [Suspect]
     Dosage: INFUSION
     Dates: start: 20081120

REACTIONS (5)
  - OCULAR HYPERAEMIA [None]
  - PHOTOSENSITIVITY REACTION [None]
  - INFLUENZA LIKE ILLNESS [None]
  - IRITIS [None]
  - SWELLING [None]
